FAERS Safety Report 7603490-6 (Version None)
Quarter: 2011Q2

REPORT INFORMATION
  Report Type: 
  Country: None (occurrence: None)
  Receive Date: 20110629
  Receipt Date: 20110623
  Transmission Date: 20111010
  Serious: Yes (Other)
  Sender: FDA-Public Use
  Company Number: B0728051A

PATIENT
  Age: 20 Year
  Sex: Male

DRUGS (2)
  1. ZOFRAN [Suspect]
     Dosage: INTRAVENOUS
     Route: 042
  2. PEG-ASPARAGINASE (PEG-ASPERAGINASE) [Suspect]
     Indication: LYMPHOCYTIC LEUKAEMIA
     Dosage: 1000 UNIT, INTRAVENOUS
     Route: 042

REACTIONS (2)
  - METABOLIC ENCEPHALOPATHY [None]
  - HYPERAMMONAEMIA [None]
